FAERS Safety Report 13448711 (Version 2)
Quarter: 2017Q3

REPORT INFORMATION
  Report Type: Spontaneous
  Country: FR (occurrence: FR)
  Receive Date: 20170417
  Receipt Date: 20170712
  Transmission Date: 20171127
  Serious: Yes (Other)
  Sender: FDA-Public Use
  Company Number: FR-JNJFOC-20170415192

PATIENT
  Age: 68 Year
  Sex: Male

DRUGS (16)
  1. ZYPREXA [Concomitant]
     Active Substance: OLANZAPINE
     Indication: BIPOLAR I DISORDER
     Route: 048
     Dates: start: 2012
  2. SULFARLEM [Concomitant]
     Active Substance: ANETHOLTRITHION
     Indication: APTYALISM
     Dosage: DRUG: SULFAREM S25 AND DOSE: 3 (UNITS UNSPECIFIED)
     Route: 048
     Dates: start: 201612, end: 201706
  3. DAFALGAN [Concomitant]
     Active Substance: ACETAMINOPHEN
     Dosage: STRENGTH: 500 MG
     Route: 065
  4. RISPERDAL CONSTA [Suspect]
     Active Substance: RISPERIDONE
     Indication: BIPOLAR I DISORDER
     Route: 030
     Dates: start: 2015, end: 20170414
  5. TOPALGIC LP [Concomitant]
     Active Substance: TRAMADOL
     Dosage: STRENGTH: 150 MG
     Route: 065
  6. MACROGOL [Concomitant]
     Active Substance: POLYETHYLENE GLYCOLS
     Route: 048
  7. LANSOYL [Concomitant]
     Active Substance: MINERAL OIL
     Route: 048
  8. CARBOCISTEINE [Concomitant]
     Active Substance: CARBOCYSTEINE
     Dosage: STRENGTH: 750 MG
     Route: 065
  9. ZYPREXA [Concomitant]
     Active Substance: OLANZAPINE
     Indication: BIPOLAR I DISORDER
     Dosage: STRENGTH: 7.5 MG
     Route: 048
  10. DEPAKOTE [Concomitant]
     Active Substance: DIVALPROEX SODIUM
     Indication: BIPOLAR I DISORDER
     Dosage: BRAND NAME: DEVALPROATE AND STRENGTH: 500 MG
     Route: 048
  11. DEPAKOTE [Concomitant]
     Active Substance: DIVALPROEX SODIUM
     Indication: BIPOLAR I DISORDER
     Route: 048
     Dates: start: 2013
  12. BURINEX [Concomitant]
     Active Substance: BUMETANIDE
     Dosage: STRENGTH: 1 MG
     Route: 065
  13. PERMIXON [Concomitant]
     Active Substance: HERBALS\SAW PALMETTO
     Dosage: STRENGTH: 160 MG
     Route: 065
  14. UROREC [Concomitant]
     Active Substance: SILODOSIN
     Dosage: STRENGTH: 4 MG
     Route: 065
  15. LOXAPAC [Concomitant]
     Active Substance: LOXAPINE SUCCINATE
     Dosage: STRENGTH: 25 MG/ML
     Route: 048
  16. EUPANTOL [Concomitant]
     Active Substance: PANTOPRAZOLE SODIUM
     Dosage: STRENGTH: 20 MG
     Route: 065

REACTIONS (1)
  - Venous thrombosis [Recovering/Resolving]

NARRATIVE: CASE EVENT DATE: 201705
